FAERS Safety Report 24868126 (Version 3)
Quarter: 2025Q1

REPORT INFORMATION
  Report Type: Spontaneous
  Country: US (occurrence: US)
  Receive Date: 20250121
  Receipt Date: 20250220
  Transmission Date: 20250409
  Serious: Yes (Other)
  Sender: BAYER HEALTHCARE PHARMACEUTICALS INC.
  Company Number: US-BAYER-2025A008803

PATIENT
  Age: 46 Year
  Sex: Female

DRUGS (1)
  1. MIRENA [Suspect]
     Active Substance: LEVONORGESTREL
     Dosage: 20?G/DAY
     Route: 015
     Dates: start: 201804, end: 20250117

REACTIONS (3)
  - Device breakage [None]
  - Complication of device removal [None]
  - Device dislocation [Recovered/Resolved]

NARRATIVE: CASE EVENT DATE: 20180426
